FAERS Safety Report 7603160-4 (Version None)
Quarter: 2011Q3

REPORT INFORMATION
  Report Type: 
  Country: None (occurrence: None)
  Receive Date: 20110712
  Receipt Date: 20110706
  Transmission Date: 20111222
  Serious: Yes (Hospitalization)
  Sender: FDA-Public Use
  Company Number: RU-GENZYME-CAMP-1001225

PATIENT
  Sex: Female
  Weight: 66.3 kg

DRUGS (11)
  1. ALEMTUZUMAB [Suspect]
     Dosage: 12 MG, QDX3
     Route: 042
     Dates: start: 20090518, end: 20090520
  2. CYSTONE [Concomitant]
     Indication: DISBACTERIOSIS
     Dosage: 2 TAB, BID
     Route: 048
     Dates: start: 20101201, end: 20101222
  3. TERGYNAN [Concomitant]
     Indication: DISBACTERIOSIS
     Dosage: 1 VAGINAL TAB, QD
     Route: 067
     Dates: start: 20100723, end: 20100801
  4. AZITHROMYCIN [Concomitant]
     Indication: DISBACTERIOSIS
     Dosage: 500 MG, QD
     Route: 048
     Dates: start: 20100728, end: 20100730
  5. POLYGYNAX [Concomitant]
     Indication: DISBACTERIOSIS
     Dosage: 1 VAGINAL CAPSULE, QD
     Route: 067
     Dates: start: 20100920, end: 20100926
  6. ALEMTUZUMAB [Suspect]
     Indication: MULTIPLE SCLEROSIS
     Dosage: 12 MG, QDX5
     Route: 042
     Dates: start: 20080519, end: 20080523
  7. NORFLOXACIN [Concomitant]
     Indication: CYSTITIS
     Dosage: 400 MG, BID
     Route: 048
     Dates: start: 20100723, end: 20100727
  8. DOXYCYCLINE [Concomitant]
     Indication: DISBACTERIOSIS
     Dosage: 100 MG, BID
     Route: 048
     Dates: start: 20100731, end: 20100804
  9. ALEMTUZUMAB [Suspect]
     Dosage: 12 MG, QDX3
     Route: 042
     Dates: start: 20100614, end: 20100616
  10. LINEX [Concomitant]
     Indication: DISBACTERIOSIS
     Dosage: 2 CAPSULES, TID
     Route: 048
     Dates: start: 20100728, end: 20100809
  11. NORFLOXACIN [Concomitant]
     Indication: CYSTITIS NONINFECTIVE
     Dosage: 400 MG, BID
     Route: 048
     Dates: start: 20101102, end: 20101111

REACTIONS (1)
  - GLOMERULONEPHRITIS MEMBRANOUS [None]
